FAERS Safety Report 6034606-3 (Version None)
Quarter: 2009Q1

REPORT INFORMATION
  Report Type: 
  Country: None (occurrence: None)
  Receive Date: 20090112
  Receipt Date: 20090105
  Transmission Date: 20090719
  Serious: Yes (Hospitalization)
  Sender: FDA-Public Use
  Company Number: JP-MERCK-0810USA03630

PATIENT
  Age: 86 Year
  Sex: Male
  Weight: 50 kg

DRUGS (11)
  1. HYZAAR [Suspect]
     Route: 048
     Dates: end: 20081009
  2. PERSELIN [Concomitant]
     Route: 048
  3. PEPCID RPD [Concomitant]
     Route: 048
  4. FLIVAS [Concomitant]
     Route: 048
  5. COMPOUND EPITHANATE-G [Concomitant]
     Route: 048
  6. LENDORMIN [Concomitant]
     Route: 048
  7. MICARDIS [Concomitant]
     Route: 048
     Dates: start: 20080902
  8. MAINTATE [Concomitant]
     Route: 048
     Dates: start: 20080902
  9. LUPRAC [Concomitant]
     Route: 048
     Dates: start: 20080902, end: 20081009
  10. ZYRTEC [Concomitant]
     Route: 048
     Dates: start: 20080902
  11. CEROCRAL [Concomitant]
     Route: 048
     Dates: start: 20080902

REACTIONS (2)
  - HYPOKALAEMIA [None]
  - RHABDOMYOLYSIS [None]
